FAERS Safety Report 21640859 (Version 1)
Quarter: 2022Q4

REPORT INFORMATION
  Report Type: Spontaneous
  Country: GB (occurrence: GB)
  Receive Date: 20221125
  Receipt Date: 20221125
  Transmission Date: 20230113
  Serious: Yes (Other)
  Sender: FDA-Public Use
  Company Number: GB-TAKEDA-2022TUS086810

PATIENT
  Age: 29 Year
  Sex: Female

DRUGS (2)
  1. STELARA [Suspect]
     Active Substance: USTEKINUMAB
     Indication: Crohn^s disease
     Dosage: UNK; ;
     Route: 058
  2. ENTYVIO [Suspect]
     Active Substance: VEDOLIZUMAB
     Indication: Crohn^s disease
     Dosage: UNK; ;
     Route: 065

REACTIONS (6)
  - Intestinal fistula [Unknown]
  - Septic shock [Unknown]
  - Crohn^s disease [Unknown]
  - Ileal stenosis [Unknown]
  - Intestinal obstruction [Unknown]
  - Therapy non-responder [Unknown]
